FAERS Safety Report 11461722 (Version 1)
Quarter: 2015Q3

REPORT INFORMATION
  Report Type: Spontaneous
  Country: US (occurrence: US)
  Receive Date: 20150831
  Receipt Date: 20150831
  Transmission Date: 20151125
  Serious: No
  Sender: FDA-Public Use
  Company Number: US-ELI_LILLY_AND_COMPANY-US201008006074

PATIENT
  Sex: Female

DRUGS (3)
  1. CYMBALTA [Suspect]
     Active Substance: DULOXETINE HYDROCHLORIDE
     Dosage: 30 MG, 2/D
     Dates: end: 20100816
  2. VITAMIN B12 [Concomitant]
     Active Substance: CYANOCOBALAMIN
     Dosage: UNK, MONTHLY (1/M)
  3. CYMBALTA [Suspect]
     Active Substance: DULOXETINE HYDROCHLORIDE
     Indication: FIBROMYALGIA
     Dosage: 30 MG, DAILY (1/D)

REACTIONS (14)
  - Apathy [Unknown]
  - Antisocial behaviour [Not Recovered/Not Resolved]
  - Iron binding capacity total decreased [Not Recovered/Not Resolved]
  - Thinking abnormal [Unknown]
  - Depressed mood [Not Recovered/Not Resolved]
  - Irritability [Not Recovered/Not Resolved]
  - Drug withdrawal syndrome [Not Recovered/Not Resolved]
  - Abdominal pain upper [Recovered/Resolved]
  - Anxiety [Unknown]
  - Anger [Not Recovered/Not Resolved]
  - Hallucination [Unknown]
  - Memory impairment [Unknown]
  - Drug effect incomplete [Unknown]
  - Agitation [Not Recovered/Not Resolved]
